FAERS Safety Report 18586640 (Version 1)
Quarter: 2020Q4

REPORT INFORMATION
  Report Type: Spontaneous
  Country: US (occurrence: US)
  Receive Date: 20201207
  Receipt Date: 20201207
  Transmission Date: 20210114
  Serious: No
  Sender: FDA-Public Use
  Company Number: US-BAYER-2020-268003

PATIENT
  Age: 24 Year
  Sex: Female

DRUGS (1)
  1. MIRENA [Suspect]
     Active Substance: LEVONORGESTREL
     Indication: CONTRACEPTION
     Dosage: 20 ?G PER DAY CONTINUOUSLY
     Route: 015
     Dates: start: 20200805

REACTIONS (6)
  - Abdominal pain lower [Not Recovered/Not Resolved]
  - Amenorrhoea [Recovered/Resolved]
  - Breast tenderness [None]
  - Menorrhagia [Not Recovered/Not Resolved]
  - Vaginal odour [Not Recovered/Not Resolved]
  - Mood altered [None]

NARRATIVE: CASE EVENT DATE: 20200805
